FAERS Safety Report 25832766 (Version 1)
Quarter: 2025Q3

REPORT INFORMATION
  Report Type: Spontaneous
  Country: US (occurrence: US)
  Receive Date: 20250922
  Receipt Date: 20250922
  Transmission Date: 20251020
  Serious: No
  Sender: CALLIDITAS THERAPEUTICS AB
  Company Number: US-Calliditas-2025CAL01788

PATIENT
  Age: 27 Year
  Sex: Male

DRUGS (1)
  1. TARPEYO [Suspect]
     Active Substance: BUDESONIDE
     Indication: IgA nephropathy
     Dosage: ONE 4MG CAPSULE ONCE DAILY IN THE MORNING
     Route: 048
     Dates: start: 20240828

REACTIONS (3)
  - Product dose omission issue [Recovering/Resolving]
  - Underdose [Unknown]
  - Transplant [Unknown]

NARRATIVE: CASE EVENT DATE: 20250609
